FAERS Safety Report 5064834-5 (Version None)
Quarter: 2006Q3

REPORT INFORMATION
  Report Type: 
  Country: None (occurrence: None)
  Receive Date: 20060728
  Receipt Date: 20060719
  Transmission Date: 20061208
  Serious: Yes (Other)
  Sender: FDA-Public Use
  Company Number: US-BRISTOL-MYERS SQUIBB COMPANY-13450648

PATIENT
  Age: 62 Year
  Sex: Female
  Weight: 82 kg

DRUGS (5)
  1. CARDIOLITE [Suspect]
     Indication: CARDIAC IMAGING PROCEDURE
  2. BLOOD PRESSURE MEDICATION [Concomitant]
  3. ACTOS [Concomitant]
  4. ZOCOR [Concomitant]
  5. CHOLESTEROL MEDICATION [Concomitant]

REACTIONS (4)
  - BLOOD PRESSURE INCREASED [None]
  - EYELID OEDEMA [None]
  - SCLERAL HYPERAEMIA [None]
  - TREMOR [None]
